FAERS Safety Report 9519447 (Version 2)
Quarter: 2013Q4

REPORT INFORMATION
  Report Type: Spontaneous
  Country: FR (occurrence: FR)
  Receive Date: 20130912
  Receipt Date: 20131010
  Transmission Date: 20140711
  Serious: Yes (Hospitalization)
  Sender: FDA-Public Use
  Company Number: FR-GLAXOSMITHKLINE-B0920012A

PATIENT
  Age: 85 Year
  Sex: Female

DRUGS (3)
  1. ARIXTRA [Suspect]
     Indication: THROMBOPHLEBITIS
     Dosage: 2.5MG PER DAY
     Route: 058
     Dates: start: 20130614, end: 20130620
  2. LOVENOX [Suspect]
     Indication: THROMBOPHLEBITIS
     Dosage: .6ML TWICE PER DAY
     Route: 058
     Dates: start: 20130607, end: 20130614
  3. GLUCOPHAGE [Concomitant]
     Dosage: 500MG TWICE PER DAY

REACTIONS (4)
  - Subdural haematoma [Recovering/Resolving]
  - Hemiparesis [Unknown]
  - Condition aggravated [Unknown]
  - Underdose [Unknown]
